FAERS Safety Report 20537430 (Version 2)
Quarter: 2022Q2

REPORT INFORMATION
  Report Type: Spontaneous
  Country: JP (occurrence: JP)
  Receive Date: 20220302
  Receipt Date: 20220516
  Transmission Date: 20220720
  Serious: No
  Sender: FDA-Public Use
  Company Number: JP-GLAXOSMITHKLINE-JP2022JPN033983

PATIENT

DRUGS (4)
  1. SOTROVIMAB [Suspect]
     Active Substance: SOTROVIMAB
     Indication: COVID-19
     Dosage: 500 MG
     Route: 041
     Dates: start: 20220221, end: 20220221
  2. PULMICORT TURBUHALER [Suspect]
     Active Substance: BUDESONIDE
     Indication: Childhood asthma
     Dosage: 200 UG, BID
     Route: 055
     Dates: start: 2016
  3. CALONAL [Suspect]
     Active Substance: ACETAMINOPHEN
     Indication: COVID-19
     Dosage: 400 MG/DOSE, AS NEEDED
     Route: 048
     Dates: start: 20220221, end: 20220222
  4. FERROUS CITRATE [Suspect]
     Active Substance: FERROUS CITRATE
     Indication: Anaemia
     Dosage: 100 MG/DAY
     Route: 048
     Dates: start: 20220223, end: 20220302

REACTIONS (1)
  - Exposure during pregnancy [Unknown]
